FAERS Safety Report 11636470 (Version 2)
Quarter: 2015Q4

REPORT INFORMATION
  Report Type: Report from Study
  Country: US (occurrence: US)
  Receive Date: 20151016
  Receipt Date: 20151125
  Transmission Date: 20160304
  Serious: Yes (Other)
  Sender: FDA-Public Use
  Company Number: US-BIOGENIDEC-2015BI137784

PATIENT
  Age: 61 Year
  Sex: Female
  Weight: 78 kg

DRUGS (3)
  1. TYSABRI [Suspect]
     Active Substance: NATALIZUMAB
     Indication: MULTIPLE SCLEROSIS
     Route: 042
     Dates: start: 20120402, end: 20150605
  2. AMANTADINE [Concomitant]
     Active Substance: AMANTADINE
     Indication: FATIGUE
  3. BACLOFEN. [Concomitant]
     Active Substance: BACLOFEN
     Indication: MUSCLE SPASMS

REACTIONS (1)
  - Drug delivery device implantation [Unknown]

NARRATIVE: CASE EVENT DATE: 2015
